FAERS Safety Report 12269228 (Version 1)
Quarter: 2016Q2

REPORT INFORMATION
  Report Type: Spontaneous
  Country: SE (occurrence: SE)
  Receive Date: 20160414
  Receipt Date: 20160414
  Transmission Date: 20160815
  Serious: Yes (Disabling)
  Sender: FDA-Public Use
  Company Number: SE-TEVA-649738ISR

PATIENT
  Age: 79 Year
  Sex: Female

DRUGS (1)
  1. RAMIPRIL. [Suspect]
     Active Substance: RAMIPRIL
     Route: 065

REACTIONS (2)
  - Vasculitis [Recovered/Resolved with Sequelae]
  - Skin necrosis [Recovered/Resolved with Sequelae]
